FAERS Safety Report 5114612-3 (Version None)
Quarter: 2006Q3

REPORT INFORMATION
  Report Type: 
  Country: None (occurrence: None)
  Receive Date: 20060926
  Receipt Date: 20060911
  Transmission Date: 20061208
  Serious: Yes (Other)
  Sender: FDA-Public Use
  Company Number: BR-BRISTOL-MYERS SQUIBB COMPANY-13507934

PATIENT
  Age: 17 Year
  Sex: Female

DRUGS (1)
  1. COUMADIN [Suspect]
     Dates: start: 20060701, end: 20060701

REACTIONS (4)
  - HAEMATURIA [None]
  - INTENTIONAL OVERDOSE [None]
  - PREGNANCY [None]
  - SUICIDE ATTEMPT [None]
